FAERS Safety Report 4745164-5 (Version None)
Quarter: 2005Q3

REPORT INFORMATION
  Report Type: 
  Country: None (occurrence: None)
  Receive Date: 20050812
  Receipt Date: 20050727
  Transmission Date: 20060218
  Serious: Yes (Death)
  Sender: FDA-Public Use
  Company Number: S05-UKI-02764-01

PATIENT
  Sex: Female

DRUGS (4)
  1. CIPRALEX (ESCITALOPRAM) [Suspect]
     Dosage: 10 MG QD PO
     Route: 048
  2. FLUANXOL ^LUNDBECK^ (FLUPENTIXOL DIHYDROCHLORIDE) [Suspect]
  3. ZOPICLONE [Concomitant]
  4. QUININE BISULFATE [Concomitant]

REACTIONS (1)
  - SUDDEN DEATH [None]
